FAERS Safety Report 8409550 (Version 2)
Quarter: 2014Q4

REPORT INFORMATION
  Report Type: Spontaneous
  Country: US (occurrence: US)
  Receive Date: 20120216
  Receipt Date: 20141222
  Transmission Date: 20150529
  Serious: Yes (Hospitalization, Other)
  Sender: FDA-Public Use
  Company Number: US-ROCHE-788915

PATIENT
  Sex: Male
  Weight: 133.93 kg

DRUGS (1)
  1. ACCUTANE [Suspect]
     Active Substance: ISOTRETINOIN
     Indication: ACNE
     Route: 048
     Dates: start: 1990, end: 1991

REACTIONS (8)
  - Enterocutaneous fistula [Unknown]
  - Blood triglycerides increased [Unknown]
  - Colitis ulcerative [Unknown]
  - Lip dry [Unknown]
  - Inflammatory bowel disease [Unknown]
  - Irritable bowel syndrome [Unknown]
  - Pharyngitis [Unknown]
  - Iron deficiency [Unknown]

NARRATIVE: CASE EVENT DATE: 1993
